FAERS Safety Report 8918340 (Version 1)
Quarter: 2012Q4

REPORT INFORMATION
  Report Type: 
  Country: US (occurrence: US)
  Receive Date: 20121120
  Receipt Date: 20121120
  Transmission Date: 20130627
  Serious: No
  Sender: FDA-Public Use
  Company Number: US-ASTRAZENECA-2012SE26132

PATIENT
  Age: 73 Year
  Sex: Male
  Weight: 94.3 kg

DRUGS (4)
  1. NEXIUM [Suspect]
     Indication: GASTROOESOPHAGEAL REFLUX DISEASE
     Route: 048
  2. VITAMINS [Concomitant]
  3. MELOXICAM [Concomitant]
  4. CELEBREX [Concomitant]

REACTIONS (2)
  - Hiatus hernia [Unknown]
  - Intentional drug misuse [Unknown]
